FAERS Safety Report 8861304 (Version 1)
Quarter: 2012Q4

REPORT INFORMATION
  Report Type: 
  Country: US (occurrence: US)
  Receive Date: 20121026
  Receipt Date: 20121026
  Transmission Date: 20130627
  Serious: No
  Sender: FDA-Public Use
  Company Number: US-PFIZER INC-2012264199

PATIENT
  Age: 88 Year
  Sex: Female
  Weight: 45.35 kg

DRUGS (5)
  1. PROCARDIA XL [Suspect]
     Dosage: 60 mg, 1x/day
     Route: 048
     Dates: start: 2009
  2. MICARDIS [Concomitant]
     Dosage: UNK
  3. LUMIGAN [Concomitant]
     Dosage: UNK
  4. ALPHAGAN [Concomitant]
     Dosage: UNK
  5. PRADAXA [Concomitant]
     Dosage: UNK

REACTIONS (1)
  - Foot fracture [Recovering/Resolving]
